FAERS Safety Report 8765821 (Version 1)
Quarter: 2012Q4

REPORT INFORMATION
  Report Type: 
  Country: US (occurrence: US)
  Receive Date: 20120903
  Receipt Date: 20120903
  Transmission Date: 20130627
  Serious: No
  Sender: FDA-Public Use
  Company Number: US-PFIZER INC-2012214446

PATIENT
  Age: 39 Year
  Sex: Female
  Weight: 56.69 kg

DRUGS (4)
  1. NEURONTIN [Suspect]
     Indication: NEURALGIA
     Dosage: UNK, 3x/day
     Route: 048
     Dates: start: 201208, end: 201208
  2. LYRICA [Suspect]
     Indication: NEURALGIA
     Dosage: 75 mg, 3x/day
     Route: 048
     Dates: start: 20120827
  3. MS CONTIN [Concomitant]
     Indication: PAIN
     Dosage: UNK, 3x/day
  4. NORCO [Concomitant]
     Indication: PAIN
     Dosage: UNK, as needed

REACTIONS (7)
  - Pain [Recovered/Resolved]
  - Oropharyngeal discomfort [Not Recovered/Not Resolved]
  - Ear discomfort [Not Recovered/Not Resolved]
  - Bone disorder [Not Recovered/Not Resolved]
  - Malaise [Not Recovered/Not Resolved]
  - Burning sensation [Not Recovered/Not Resolved]
  - Insomnia [Not Recovered/Not Resolved]
